FAERS Safety Report 6301278-X (Version None)
Quarter: 2009Q3

REPORT INFORMATION
  Report Type: 
  Country: None (occurrence: None)
  Receive Date: 20090807
  Receipt Date: 20090807
  Transmission Date: 20100115
  Serious: Yes (Death, Hospitalization, Other)
  Sender: FDA-Public Use
  Company Number: US-ROXANE LABORATORIES, INC.-2009-RO-00733RO

PATIENT
  Age: 58 Year
  Sex: Female
  Weight: 60 kg

DRUGS (13)
  1. ROXICET [Suspect]
     Indication: PAIN
     Route: 048
  2. LISINOPRIL [Suspect]
     Indication: HYPERTENSION
     Dosage: 5 MG
     Route: 048
  3. METFORMIN [Suspect]
     Indication: DIABETES MELLITUS
     Dosage: 500 MG
     Route: 048
  4. CEFTIN [Concomitant]
     Dosage: 500 MG
     Route: 048
  5. DECLOMYCIN [Concomitant]
     Indication: INAPPROPRIATE ANTIDIURETIC HORMONE SECRETION
     Dosage: 1200 MG
     Route: 048
  6. WELLBUTRIN [Concomitant]
     Indication: DEPRESSION
     Dosage: 150 MG
     Route: 048
  7. MEMANTINE [Concomitant]
     Dates: start: 20090427, end: 20090525
  8. MEMANTINE [Concomitant]
     Dates: start: 20090526, end: 20090601
  9. BISACODYL [Concomitant]
     Indication: CONSTIPATION
     Route: 054
  10. COMPAZINE [Concomitant]
     Indication: NAUSEA
  11. TYLENOL (CAPLET) [Concomitant]
     Indication: PAIN
     Route: 048
  12. SENNA [Concomitant]
     Indication: DRUG THERAPY
     Route: 048
  13. INSULIN [Concomitant]
     Indication: DIABETES MELLITUS
     Route: 058

REACTIONS (24)
  - BLOOD UREA INCREASED [None]
  - CARDIAC FAILURE CONGESTIVE [None]
  - CONFUSIONAL STATE [None]
  - CONGESTIVE CARDIOMYOPATHY [None]
  - DEHYDRATION [None]
  - GASTRITIS [None]
  - HIATUS HERNIA [None]
  - HYPERKALAEMIA [None]
  - HYPERTENSION [None]
  - HYPOALBUMINAEMIA [None]
  - HYPOKALAEMIA [None]
  - HYPOTENSION [None]
  - LEFT VENTRICULAR DYSFUNCTION [None]
  - LEUKOCYTOSIS [None]
  - MALNUTRITION [None]
  - MUSCULAR WEAKNESS [None]
  - PAIN [None]
  - PLEURAL EFFUSION [None]
  - PNEUMONIA [None]
  - RENAL FAILURE ACUTE [None]
  - SEPTIC SHOCK [None]
  - SMALL CELL LUNG CANCER METASTATIC [None]
  - SOMNOLENCE [None]
  - URINARY TRACT INFECTION FUNGAL [None]
